FAERS Safety Report 4590275-0 (Version None)
Quarter: 2005Q1

REPORT INFORMATION
  Report Type: 
  Country: None (occurrence: None)
  Receive Date: 20050224
  Receipt Date: 20050209
  Transmission Date: 20050727
  Serious: Yes (Death, Other)
  Sender: FDA-Public Use
  Company Number: PHBS2005JP02104

PATIENT
  Age: 19 Year
  Sex: Female
  Weight: 65 kg

DRUGS (4)
  1. VOLTAREN [Suspect]
     Indication: NASOPHARYNGITIS
     Dosage: UNK, UNK
     Route: 048
     Dates: start: 20020101, end: 20021018
  2. LOXONIN [Suspect]
     Indication: NASOPHARYNGITIS
     Dosage: UNK, UNK
     Route: 048
     Dates: start: 20020101, end: 20021018
  3. CYTARABINE [Concomitant]
  4. DAUNORUBICIN HCL [Concomitant]

REACTIONS (3)
  - GASTROINTESTINAL ULCER [None]
  - LEUKAEMIA RECURRENT [None]
  - MELAENA [None]
